FAERS Safety Report 6529634-5 (Version None)
Quarter: 2010Q1

REPORT INFORMATION
  Report Type: 
  Country: None (occurrence: None)
  Receive Date: 20100107
  Receipt Date: 20100105
  Transmission Date: 20100710
  Serious: Yes (Hospitalization)
  Sender: FDA-Public Use
  Company Number: GB-ROCHE-628661

PATIENT
  Age: 84 Year
  Sex: Female

DRUGS (7)
  1. CLONAZEPAM [Suspect]
     Indication: DRUG USE FOR UNKNOWN INDICATION
     Route: 048
  2. CLONAZEPAM [Suspect]
     Route: 048
  3. ACECOL [Concomitant]
     Dosage: REPORTED DRUG NAME: ACECOL (TEMOCAPRIL HYDROCHLORIDE)
  4. ADCAL [Concomitant]
  5. ARICEPT [Concomitant]
     Dosage: REPORTED DRUG NAME: ARICEPT (DONEPEZIL HYDROCHLORIDE)
  6. BENDROFLUAZIDE [Concomitant]
  7. OMEPRAZOLE [Concomitant]

REACTIONS (2)
  - DRUG ADMINISTRATION ERROR [None]
  - SEDATION [None]
